FAERS Safety Report 18510111 (Version 1)
Quarter: 2020Q4

REPORT INFORMATION
  Report Type: Spontaneous
  Country: JP (occurrence: JP)
  Receive Date: 20201117
  Receipt Date: 20201117
  Transmission Date: 20210114
  Serious: Yes (Other)
  Sender: FDA-Public Use
  Company Number: NVSJ2020JP011684

PATIENT
  Age: 83 Year
  Sex: Female

DRUGS (6)
  1. ETHAMBUTOL [Suspect]
     Active Substance: ETHAMBUTOL HYDROCHLORIDE
     Indication: LYMPH NODE TUBERCULOSIS
     Dosage: UNK
     Route: 065
  2. ISONIAZID. [Concomitant]
     Active Substance: ISONIAZID
     Indication: LYMPH NODE TUBERCULOSIS
     Dosage: UNK
     Route: 065
  3. RIFAMPICIN [Suspect]
     Active Substance: RIFAMPIN
     Indication: LYMPH NODE TUBERCULOSIS
     Dosage: UNK
     Route: 065
  4. ISONIAZID. [Concomitant]
     Active Substance: ISONIAZID
     Indication: PSOAS ABSCESS
  5. RIFAMPICIN [Suspect]
     Active Substance: RIFAMPIN
     Indication: PSOAS ABSCESS
  6. ETHAMBUTOL [Suspect]
     Active Substance: ETHAMBUTOL HYDROCHLORIDE
     Indication: PSOAS ABSCESS

REACTIONS (5)
  - Product use in unapproved indication [Unknown]
  - Lymph node tuberculosis [Recovering/Resolving]
  - Psoas abscess [Recovering/Resolving]
  - Lymphadenopathy [Recovering/Resolving]
  - Disease progression [Recovering/Resolving]
